FAERS Safety Report 4903972-1 (Version None)
Quarter: 2006Q1

REPORT INFORMATION
  Report Type: 
  Country: None (occurrence: None)
  Receive Date: 20060208
  Receipt Date: 20020827
  Transmission Date: 20060701
  Serious: No
  Sender: FDA-Public Use
  Company Number: US-GLAXOSMITHKLINE-A0379312A

PATIENT
  Age: 36 Year
  Sex: Male

DRUGS (2)
  1. PAXIL [Suspect]
     Dosage: 25MG PER DAY
     Route: 048
  2. PAXIL CR [Suspect]
     Dosage: 25MG PER DAY
     Route: 048
     Dates: start: 20020826

REACTIONS (3)
  - ABNORMAL DREAMS [None]
  - PARAESTHESIA [None]
  - SENSORY DISTURBANCE [None]
